FAERS Safety Report 6241765-6 (Version None)
Quarter: 2009Q2

REPORT INFORMATION
  Report Type: 
  Country: None (occurrence: None)
  Receive Date: 20090623
  Receipt Date: 20040310
  Transmission Date: 20091009
  Serious: Yes (Hospitalization)
  Sender: FDA-Public Use
  Company Number: SE-ROCHE-360084

PATIENT
  Sex: Female

DRUGS (39)
  1. DACLIZUMAB [Suspect]
     Route: 042
     Dates: start: 20031225
  2. DACLIZUMAB [Suspect]
     Route: 042
     Dates: start: 20040109
  3. MYCOPHENOLATE MOFETIL [Suspect]
     Route: 048
     Dates: start: 20031225, end: 20031225
  4. MYCOPHENOLATE MOFETIL [Suspect]
     Route: 048
     Dates: start: 20031226, end: 20040102
  5. MYCOPHENOLATE MOFETIL [Suspect]
     Route: 048
     Dates: start: 20040103, end: 20040119
  6. MYCOPHENOLATE MOFETIL [Suspect]
     Route: 048
     Dates: start: 20040322, end: 20040322
  7. MYCOPHENOLATE MOFETIL [Suspect]
     Route: 048
     Dates: start: 20040323, end: 20040329
  8. MYCOPHENOLATE MOFETIL [Suspect]
     Route: 048
     Dates: start: 20040330, end: 20061016
  9. MYCOPHENOLATE MOFETIL [Suspect]
     Route: 048
     Dates: start: 20040120, end: 20040321
  10. MYCOPHENOLATE MOFETIL [Suspect]
     Route: 048
     Dates: start: 20061017, end: 20061026
  11. MYCOPHENOLATE MOFETIL [Suspect]
     Route: 048
     Dates: start: 20061027, end: 20061107
  12. MYCOPHENOLATE MOFETIL [Suspect]
     Route: 048
     Dates: start: 20061108
  13. SIROLIMUS [Suspect]
     Route: 048
     Dates: start: 20031226, end: 20040315
  14. PREDNISOLONE [Suspect]
     Route: 048
     Dates: start: 20031226, end: 20050111
  15. METHYLPREDNISOLONE [Suspect]
     Route: 042
     Dates: start: 20031225
  16. METHYLPREDNISOLONE [Suspect]
     Route: 042
     Dates: start: 20040319
  17. METHYLPREDNISOLONE [Suspect]
     Route: 042
     Dates: start: 20040320, end: 20040323
  18. HYDROCORTISON [Suspect]
     Route: 042
     Dates: start: 20040220
  19. TACROLIMUS [Suspect]
     Route: 048
     Dates: start: 20040315, end: 20040318
  20. TACROLIMUS [Suspect]
     Route: 048
     Dates: start: 20040319, end: 20040321
  21. TACROLIMUS [Suspect]
     Route: 048
     Dates: start: 20040322, end: 20040323
  22. TACROLIMUS [Suspect]
     Route: 048
     Dates: start: 20040324, end: 20040324
  23. TACROLIMUS [Suspect]
     Route: 048
     Dates: start: 20040325
  24. FUROSEMID [Concomitant]
     Route: 048
     Dates: start: 20031226
  25. PANTOPRAZOL [Concomitant]
     Route: 048
     Dates: start: 20031227
  26. VALGANCICLOVIR HCL [Concomitant]
     Route: 048
     Dates: end: 20031220
  27. VALGANCICLOVIR HCL [Concomitant]
     Dosage: DRUG: VALGANCIKLOVIR
     Route: 048
     Dates: start: 20031229, end: 20040103
  28. VALGANCICLOVIR HCL [Concomitant]
     Route: 048
     Dates: start: 20040104, end: 20040706
  29. VALGANCICLOVIR HCL [Concomitant]
     Route: 048
     Dates: start: 20040707
  30. GLYBURIDE [Concomitant]
     Dosage: DRUG: GLIBENKLAMID
     Route: 048
     Dates: start: 20040105, end: 20040707
  31. ACETYLSALICYLSYRA [Concomitant]
     Route: 048
     Dates: start: 20040107
  32. CEFOTAXIM [Concomitant]
     Route: 042
     Dates: start: 20031223
  33. FLUCONAZOLE [Concomitant]
     Route: 048
     Dates: start: 20040224
  34. INSULIN [Concomitant]
     Route: 058
     Dates: start: 20031227, end: 20040104
  35. PENTAMIDIN [Concomitant]
     Dosage: ROUTE REPORTED AS IH
     Dates: start: 20040101
  36. PENTAMIDIN [Concomitant]
     Dates: start: 20040210
  37. PENTAMIDIN [Concomitant]
     Dates: start: 20040318
  38. TRIMETHOPRIM [Concomitant]
     Route: 048
     Dates: start: 20040309
  39. TRIMETHOPRIM [Concomitant]
     Route: 048
     Dates: start: 20040320

REACTIONS (2)
  - GASTROENTERITIS [None]
  - RENAL IMPAIRMENT [None]
